FAERS Safety Report 4283707-9 (Version None)
Quarter: 2004Q1

REPORT INFORMATION
  Report Type: 
  Country: None (occurrence: None)
  Receive Date: 20040202
  Receipt Date: 20031106
  Transmission Date: 20041129
  Serious: Yes (Hospitalization, Disabling)
  Sender: FDA-Public Use
  Company Number: WAES 0311USA00662

PATIENT
  Age: 80 Year
  Sex: Female

DRUGS (5)
  1. ZETIA [Suspect]
     Indication: LIPIDS ABNORMAL
     Route: 048
     Dates: end: 20030101
  2. LASIX [Concomitant]
  3. GLYBURIDE [Concomitant]
  4. METOPROLOL [Concomitant]
  5. AVANDIA [Concomitant]

REACTIONS (1)
  - JAUNDICE CHOLESTATIC [None]
